FAERS Safety Report 4945051-3 (Version None)
Quarter: 2006Q1

REPORT INFORMATION
  Report Type: 
  Country: None (occurrence: None)
  Receive Date: 20060117
  Receipt Date: 20050802
  Transmission Date: 20060701
  Serious: Yes (Hospitalization)
  Sender: FDA-Public Use
  Company Number: FEI2005-1974

PATIENT
  Age: 31 Year
  Sex: Female

DRUGS (2)
  1. INTRAUTERINE COPPER CONTRACEPTIVE [Suspect]
     Indication: CONTRACEPTION
     Dosage: INTRA-UTERINE
     Route: 015
     Dates: start: 20050712, end: 20050805
  2. PRENATAL VITAMINS (PRENATAL VITAMINS) [Concomitant]

REACTIONS (6)
  - ABDOMINAL ADHESIONS [None]
  - ABDOMINAL PAIN [None]
  - BETA HAEMOLYTIC STREPTOCOCCAL INFECTION [None]
  - PELVIC PAIN [None]
  - UTERINE PERFORATION [None]
  - VAGINAL HAEMORRHAGE [None]
